FAERS Safety Report 9406672 (Version 1)
Quarter: 2013Q3

REPORT INFORMATION
  Report Type: Spontaneous
  Country: US (occurrence: US)
  Receive Date: 20130718
  Receipt Date: 20130718
  Transmission Date: 20140515
  Serious: No
  Sender: FDA-Public Use
  Company Number: US-BIOGENIDEC-2013BI064152

PATIENT
  Age: 59 Year
  Sex: Female

DRUGS (4)
  1. TYSABRI [Suspect]
     Indication: MULTIPLE SCLEROSIS
     Route: 042
     Dates: start: 20120314, end: 20120314
  2. TYSABRI [Suspect]
     Indication: MULTIPLE SCLEROSIS
     Route: 042
     Dates: start: 20120726
  3. ZOLOFT [Concomitant]
     Indication: DEPRESSION
  4. AMITRIPTYLINE [Concomitant]
     Indication: DEPRESSION

REACTIONS (2)
  - Sleep disorder [Not Recovered/Not Resolved]
  - Alopecia [Recovered/Resolved]
